FAERS Safety Report 8115835-1 (Version None)
Quarter: 2012Q1

REPORT INFORMATION
  Report Type: 
  Country: None (occurrence: None)
  Receive Date: 20120206
  Receipt Date: 20120131
  Transmission Date: 20120608
  Serious: Yes (Hospitalization)
  Sender: FDA-Public Use
  Company Number: JP-ROCHE-1025798

PATIENT
  Sex: Male
  Weight: 43 kg

DRUGS (17)
  1. XELODA [Suspect]
     Indication: COLON CANCER METASTATIC
     Route: 048
     Dates: start: 20110908, end: 20120105
  2. IMIDAPRIL HYDROCHLORIDE [Concomitant]
     Indication: HYPERTENSION
     Route: 048
  3. CEFAZOLIN SODIUM [Concomitant]
     Indication: CONSTIPATION PROPHYLAXIS
     Route: 048
  4. PYDOXAL [Concomitant]
     Indication: PROPHYLAXIS
     Route: 048
     Dates: start: 20110908
  5. GRANISETRON [Concomitant]
     Indication: PROPHYLAXIS
     Route: 041
     Dates: start: 20110908
  6. OXALIPLATIN [Suspect]
     Indication: COLON CANCER METASTATIC
     Route: 041
     Dates: start: 20110908, end: 20111215
  7. AVASTIN [Suspect]
     Indication: COLON CANCER METASTATIC
     Route: 041
     Dates: start: 20110908, end: 20111222
  8. MAGNESIUM SULFATE [Concomitant]
     Indication: CONSTIPATION PROPHYLAXIS
     Route: 048
  9. KOLANTYL [Concomitant]
     Indication: GASTRITIS PROPHYLAXIS
     Route: 048
  10. OMEPRAZOLE [Concomitant]
     Indication: GASTROOESOPHAGEAL REFLUX DISEASE
     Route: 048
  11. SHAKUYAKU-KANZO-TO [Concomitant]
     Indication: ALCOHOLIC LIVER DISEASE
     Dosage: FOR TON AT CHARLEY HORSE
     Route: 048
  12. DEXAMETHASONE SODIUM PHOSPHATE [Concomitant]
     Indication: PROPHYLAXIS
     Route: 042
     Dates: start: 20110908
  13. AMLODIPINE [Concomitant]
     Indication: HYPERTENSION
     Route: 048
  14. URSO 250 [Concomitant]
     Indication: ALCOHOLIC LIVER DISEASE
     Route: 048
  15. HIRUDOID [Concomitant]
     Indication: PROPHYLAXIS
     Dosage: PROPER QUANTITY AND TON TIMES
     Route: 061
     Dates: start: 20110908
  16. FAMOTIDINE [Concomitant]
     Indication: PROPHYLAXIS
     Route: 042
     Dates: start: 20110908
  17. POLARAMINE [Concomitant]
     Indication: PROPHYLAXIS
     Route: 042
     Dates: start: 20110908

REACTIONS (2)
  - HAEMOGLOBIN DECREASED [None]
  - INTERSTITIAL LUNG DISEASE [None]
